FAERS Safety Report 19565327 (Version 2)
Quarter: 2022Q1

REPORT INFORMATION
  Report Type: Spontaneous
  Country: GB (occurrence: GB)
  Receive Date: 20210716
  Receipt Date: 20220328
  Transmission Date: 20220424
  Serious: Yes (Hospitalization, Other)
  Sender: FDA-Public Use
  Company Number: None

PATIENT
  Age: 51 Year
  Sex: Female
  Weight: 65.77 kg

DRUGS (3)
  1. AMLODIPINE [Suspect]
     Active Substance: AMLODIPINE BESYLATE
     Indication: Ill-defined disorder
     Dosage: 10 MG
     Route: 048
     Dates: start: 20210504, end: 20210531
  2. BECLOMETHASONE DIPROPIONATE [Concomitant]
     Active Substance: BECLOMETHASONE DIPROPIONATE
     Indication: Product used for unknown indication
     Dosage: UNK
     Route: 065
  3. THYROXINE [Concomitant]
     Active Substance: LEVOTHYROXINE
     Indication: Ill-defined disorder
     Dosage: UNK
     Route: 065

REACTIONS (11)
  - Seizure [Unknown]
  - Joint swelling [Not Recovered/Not Resolved]
  - Palpitations [Unknown]
  - Muscle rigidity [Unknown]
  - Dysarthria [Unknown]
  - Muscle spasms [Unknown]
  - Asthenia [Unknown]
  - Tremor [Unknown]
  - Dizziness [Unknown]
  - Product dispensing error [Unknown]
  - Medication error [Unknown]
